FAERS Safety Report 7967934-2 (Version None)
Quarter: 2011Q4

REPORT INFORMATION
  Report Type: 
  Country: None (occurrence: None)
  Receive Date: 20111208
  Receipt Date: 20111208
  Transmission Date: 20120403
  Serious: Yes (Hospitalization, Other)
  Sender: FDA-Public Use
  Company Number: None

PATIENT
  Age: 44 Year
  Sex: Male

DRUGS (7)
  1. HYDROCORTISONE [Concomitant]
  2. TEMAZEPAM [Concomitant]
  3. REVLIMID [Suspect]
     Indication: MULTIPLE MYELOMA
     Dosage: REVLIMID 25 MG  DAILY X21D/28D ORALLY
     Route: 048
     Dates: start: 20110901, end: 20111101
  4. DEXAMETHASONE [Concomitant]
  5. ONDANSETRON [Concomitant]
  6. CITALOPRAM [Concomitant]
  7. ASPIRIN [Concomitant]

REACTIONS (2)
  - PNEUMONIA [None]
  - HEADACHE [None]
